FAERS Safety Report 20654924 (Version 15)
Quarter: 2023Q1

REPORT INFORMATION
  Report Type: Spontaneous
  Country: US (occurrence: US)
  Receive Date: 20220330
  Receipt Date: 20230113
  Transmission Date: 20230418
  Serious: Yes (Hospitalization)
  Sender: FDA-Public Use
  Company Number: US-BIOGEN-2022BI01108827

PATIENT
  Sex: Female
  Weight: 44 kg

DRUGS (15)
  1. ADUHELM [Suspect]
     Active Substance: ADUCANUMAB-AVWA
     Indication: Dementia Alzheimer^s type
     Dosage: INFUSION 1
     Route: 050
     Dates: start: 20211021
  2. ADUHELM [Suspect]
     Active Substance: ADUCANUMAB-AVWA
     Dosage: INFUSION 2
     Route: 050
     Dates: start: 20211118
  3. ADUHELM [Suspect]
     Active Substance: ADUCANUMAB-AVWA
     Dosage: INFUSION 3
     Route: 050
     Dates: start: 20211216
  4. ADUHELM [Suspect]
     Active Substance: ADUCANUMAB-AVWA
     Dosage: INFUSION 4
     Route: 050
     Dates: start: 20220113
  5. ADUHELM [Suspect]
     Active Substance: ADUCANUMAB-AVWA
     Dosage: INFUSION 5
     Route: 050
     Dates: start: 20220211
  6. ADUHELM [Suspect]
     Active Substance: ADUCANUMAB-AVWA
     Dosage: INFUSION 6
     Route: 050
     Dates: start: 20220311
  7. ADUHELM [Suspect]
     Active Substance: ADUCANUMAB-AVWA
     Dosage: RESTARTING DOSE
     Route: 050
     Dates: start: 20220712
  8. ADUHELM [Suspect]
     Active Substance: ADUCANUMAB-AVWA
     Dosage: MAINTENANCE DOSE
     Route: 050
     Dates: start: 20220908
  9. SERTRALINE HYDROCHLORIDE [Concomitant]
     Active Substance: SERTRALINE HYDROCHLORIDE
     Indication: Product used for unknown indication
     Route: 050
  10. CALCIUM [Concomitant]
     Active Substance: CALCIUM
     Indication: Product used for unknown indication
     Route: 050
  11. centrum silver  women [Concomitant]
     Indication: Product used for unknown indication
     Route: 050
  12. VITAMIN B1 [Concomitant]
     Active Substance: THIAMINE HYDROCHLORIDE
     Indication: Product used for unknown indication
     Route: 050
  13. VITAMIN B12 [Concomitant]
     Active Substance: CYANOCOBALAMIN
     Indication: Product used for unknown indication
     Route: 050
  14. CALCIUM CITRATE [Concomitant]
     Active Substance: CALCIUM CITRATE
     Indication: Product used for unknown indication
     Route: 050
  15. TRAZODONE HYDROCHLORIDE [Concomitant]
     Active Substance: TRAZODONE HYDROCHLORIDE
     Indication: Product used for unknown indication
     Route: 050

REACTIONS (13)
  - Vomiting [Unknown]
  - Decreased appetite [Recovered/Resolved]
  - Crying [Recovered/Resolved]
  - Amyloid related imaging abnormality-oedema/effusion [Unknown]
  - Amyloid related imaging abnormality-microhaemorrhages and haemosiderin deposits [Unknown]
  - Confusional state [Unknown]
  - Depression [Unknown]
  - Dysstasia [Not Recovered/Not Resolved]
  - Speech disorder [Not Recovered/Not Resolved]
  - Insomnia [Recovered/Resolved]
  - Headache [Recovered/Resolved]
  - Amyloid related imaging abnormality-oedema/effusion [Recovered/Resolved]
  - Amyloid related imaging abnormality-microhaemorrhages and haemosiderin deposits [Recovered/Resolved]

NARRATIVE: CASE EVENT DATE: 20220101
